FAERS Safety Report 26054671 (Version 1)
Quarter: 2025Q4

REPORT INFORMATION
  Report Type: Spontaneous
  Country: US (occurrence: US)
  Receive Date: 20251117
  Receipt Date: 20251117
  Transmission Date: 20260117
  Serious: No
  Sender: GILEAD
  Company Number: US-GILEAD-2025-0735882

PATIENT

DRUGS (2)
  1. YEZTUGO [Suspect]
     Active Substance: LENACAPAVIR SODIUM
     Indication: Prophylaxis against HIV infection
     Dosage: 2 PILLS DAY ONE BEFORE THE SHOTS THEN 2 PILLS EXACTLY 24 HOURS LATER
     Route: 065
  2. YEZTUGO [Suspect]
     Active Substance: LENACAPAVIR SODIUM
     Indication: Prophylaxis against HIV infection
     Dosage: 2 INJECTIONS
     Route: 065

REACTIONS (2)
  - Injection site nodule [Unknown]
  - Injection site mass [Unknown]
